FAERS Safety Report 10360784 (Version 1)
Quarter: 2014Q3

REPORT INFORMATION
  Report Type: Spontaneous
  Country: US (occurrence: US)
  Receive Date: 20140804
  Receipt Date: 20140804
  Transmission Date: 20150326
  Serious: Yes (Hospitalization)
  Sender: FDA-Public Use
  Company Number: US-GLAXOSMITHKLINE-A1083708A

PATIENT
  Age: 62 Year
  Sex: Male

DRUGS (1)
  1. LAMICTAL [Suspect]
     Active Substance: LAMOTRIGINE
     Indication: EPILEPSY
     Dosage: 200MG UNKNOWN
     Route: 065
     Dates: start: 20100922

REACTIONS (1)
  - Fall [Unknown]

NARRATIVE: CASE EVENT DATE: 201407
